FAERS Safety Report 24230557 (Version 2)
Quarter: 2025Q2

REPORT INFORMATION
  Report Type: Spontaneous
  Country: FR (occurrence: FR)
  Receive Date: 20240821
  Receipt Date: 20250410
  Transmission Date: 20250717
  Serious: No
  Sender: TOLMAR
  Company Number: FR-TOLMAR, INC.-24FR051133

PATIENT
  Sex: Male

DRUGS (1)
  1. ELIGARD [Suspect]
     Active Substance: LEUPROLIDE ACETATE
     Indication: Product used for unknown indication

REACTIONS (2)
  - Intercepted product preparation error [Unknown]
  - Liquid product physical issue [Unknown]
